FAERS Safety Report 16234277 (Version 1)
Quarter: 2019Q2

REPORT INFORMATION
  Report Type: Spontaneous
  Country: US (occurrence: US)
  Receive Date: 20190319
  Receipt Date: 20190319
  Transmission Date: 20190711
  Serious: Yes (Hospitalization)
  Sender: FDA-Public Use
  Company Number: None

PATIENT
  Age: 3 Year
  Sex: Female

DRUGS (2)
  1. LABETALOL [Suspect]
     Active Substance: LABETALOL\LABETALOL HYDROCHLORIDE
     Indication: HYPERTENSION
     Dosage: ?          QUANTITY:1 DF DOSAGE FORM;?
     Route: 048
     Dates: start: 201410, end: 201812
  2. LEVOTHYROXINE. [Concomitant]
     Active Substance: LEVOTHYROXINE

REACTIONS (11)
  - Pain in extremity [None]
  - Dizziness [None]
  - Exposure during pregnancy [None]
  - Weight increased [None]
  - Chest pain [None]
  - Discomfort [None]
  - Dyspnoea [None]
  - Arthralgia [None]
  - Anxiety [None]
  - Migraine [None]
  - Troponin increased [None]

NARRATIVE: CASE EVENT DATE: 20170713
